FAERS Safety Report 4470408-7 (Version None)
Quarter: 2004Q3

REPORT INFORMATION
  Report Type: 
  Country: None (occurrence: None)
  Receive Date: 20040910
  Receipt Date: 20040610
  Transmission Date: 20050211
  Serious: No
  Sender: FDA-Public Use
  Company Number: M04-341-024

PATIENT
  Sex: Male
  Weight: 77.1 kg

DRUGS (4)
  1. VELCADE [Suspect]
     Indication: MULTIPLE MYELOMA
     Dosage: 1.3 MG/M2, IV BOLUS
     Route: 040
     Dates: start: 20030604, end: 20040115
  2. PRINIVIL [Concomitant]
  3. AREDIA [Concomitant]
  4. VITAMIN E [Concomitant]

REACTIONS (1)
  - RASH [None]
